FAERS Safety Report 6473362-1 (Version None)
Quarter: 2009Q4

REPORT INFORMATION
  Report Type: 
  Country: None (occurrence: None)
  Receive Date: 20091125
  Receipt Date: 20091113
  Transmission Date: 20100525
  Serious: Yes (Hospitalization)
  Sender: FDA-Public Use
  Company Number: WAES 0911USA02459

PATIENT
  Age: 73 Year
  Sex: Male
  Weight: 81.6475 kg

DRUGS (2)
  1. CAP VORINOSTAT UNK [Suspect]
     Indication: ACUTE MYELOID LEUKAEMIA
     Dosage: PO
     Route: 048
     Dates: start: 20091030, end: 20091107
  2. MYLOTARG [Suspect]
     Indication: ACUTE MYELOID LEUKAEMIA
     Dates: start: 20091030, end: 20091107

REACTIONS (1)
  - CHEST PAIN [None]
